FAERS Safety Report 6930227-6 (Version None)
Quarter: 2010Q3

REPORT INFORMATION
  Report Type: 
  Country: None (occurrence: None)
  Receive Date: 20100817
  Receipt Date: 20100817
  Transmission Date: 20110219
  Serious: Yes (Other)
  Sender: FDA-Public Use
  Company Number: None

PATIENT
  Age: 77 Year
  Sex: Female
  Weight: 74.3899 kg

DRUGS (1)
  1. LEVAQUIN [Suspect]
     Indication: BRONCHITIS
     Dosage: 1-1X DAY 14 DAYS ORAL
     Route: 048
     Dates: start: 20100723, end: 20100727

REACTIONS (4)
  - BACK PAIN [None]
  - BURSITIS [None]
  - MYALGIA [None]
  - PAIN IN EXTREMITY [None]
